FAERS Safety Report 6290990-7 (Version None)
Quarter: 2009Q3

REPORT INFORMATION
  Report Type: 
  Country: None (occurrence: None)
  Receive Date: 20090730
  Receipt Date: 20090715
  Transmission Date: 20100115
  Serious: Yes (Hospitalization)
  Sender: FDA-Public Use
  Company Number: FR-PFIZER INC-2009240373

PATIENT
  Age: 54 Year

DRUGS (11)
  1. CAMPTOSAR [Suspect]
     Indication: COLORECTAL CANCER
     Dosage: 25 MG/M2, 1X/DAY
     Route: 042
     Dates: start: 20090601, end: 20090601
  2. CAMPTOSAR [Suspect]
     Dosage: 300 MG/M2
     Route: 042
  3. SOLU-MEDROL [Suspect]
     Indication: PROPHYLAXIS OF NAUSEA AND VOMITING
     Dosage: 60 MG/M2, 1X/DAY
     Route: 042
     Dates: start: 20090601, end: 20090601
  4. FLUOROURACIL [Suspect]
     Indication: COLORECTAL CANCER
     Dosage: UNK
     Route: 042
     Dates: start: 20090601, end: 20090601
  5. FLUOROURACIL [Suspect]
     Dosage: 3940 MG/M2
     Route: 041
  6. FLUOROURACIL [Suspect]
     Dosage: 4030 MG/M2
     Route: 041
     Dates: start: 20090506
  7. FLUOROURACIL [Suspect]
     Dosage: 660 MG/M2
     Route: 040
  8. FLUOROURACIL [Suspect]
     Dosage: 670 MG/M2
     Route: 040
     Dates: start: 20090506
  9. CALCIUM FOLINATE [Suspect]
     Indication: COLORECTAL CANCER
     Dosage: 660 MG/M2
     Route: 042
     Dates: start: 20090601, end: 20090601
  10. AVASTIN [Suspect]
     Indication: COLORECTAL CANCER
     Dosage: 285 MG/M2
     Route: 042
     Dates: start: 20090601, end: 20090601
  11. ONDANSETRON HCL [Suspect]
     Indication: PROPHYLAXIS OF NAUSEA AND VOMITING
     Dosage: 8 MG/M2
     Route: 048
     Dates: start: 20090601, end: 20090601

REACTIONS (1)
  - JUGULAR VEIN THROMBOSIS [None]
